FAERS Safety Report 12012711 (Version 1)
Quarter: 2016Q1

REPORT INFORMATION
  Report Type: Spontaneous
  Country: US (occurrence: US)
  Receive Date: 20160205
  Receipt Date: 20160205
  Transmission Date: 20160526
  Serious: Yes (Hospitalization)
  Sender: FDA-Public Use
  Company Number: US-ASTRAZENECA-2016SE10989

PATIENT
  Age: 25072 Day
  Sex: Female
  Weight: 51.3 kg

DRUGS (8)
  1. PULMICORT FLEXHALER [Suspect]
     Active Substance: BUDESONIDE
     Indication: CHRONIC OBSTRUCTIVE PULMONARY DISEASE
     Dosage: 2, INTERMITTENT (AS NEEDED)
     Route: 055
     Dates: start: 2014, end: 20160125
  2. METOPROLOL. [Suspect]
     Active Substance: METOPROLOL
     Indication: BLOOD PRESSURE ABNORMAL
     Route: 048
  3. OXYGEN. [Concomitant]
     Active Substance: OXYGEN
     Route: 055
  4. SYMBICORT [Suspect]
     Active Substance: BUDESONIDE\FORMOTEROL FUMARATE DIHYDRATE
     Indication: CHRONIC OBSTRUCTIVE PULMONARY DISEASE
     Dosage: 2, TWO TIMES A DAY
     Route: 055
     Dates: start: 20160129, end: 20160129
  5. PROAIR HFA [Concomitant]
     Active Substance: ALBUTEROL SULFATE
     Indication: PROPHYLAXIS
     Dosage: INTERMITTENT
     Route: 055
  6. METOPROLOL. [Suspect]
     Active Substance: METOPROLOL
     Indication: BLOOD PRESSURE ABNORMAL
     Route: 048
  7. HYDROCODONE [Concomitant]
     Active Substance: HYDROCODONE
     Indication: PAIN
     Route: 048
  8. MEDROL DOSE PACK [Concomitant]
     Active Substance: METHYLPREDNISOLONE
     Dosage: AS DIRECTED
     Route: 048

REACTIONS (4)
  - Off label use [Unknown]
  - Palpitations [Unknown]
  - Chronic obstructive pulmonary disease [Unknown]
  - Product quality issue [Unknown]

NARRATIVE: CASE EVENT DATE: 20160126
